FAERS Safety Report 16366419 (Version 2)
Quarter: 2019Q2

REPORT INFORMATION
  Report Type: Report from Study
  Country: US (occurrence: US)
  Receive Date: 20190529
  Receipt Date: 20190529
  Transmission Date: 20190711
  Serious: No
  Sender: FDA-Public Use
  Company Number: PHEH2017US042839

PATIENT
  Sex: Female

DRUGS (5)
  1. KETOROLAC TROMETHAMINE. [Suspect]
     Active Substance: KETOROLAC TROMETHAMINE
     Indication: SJOGREN^S SYNDROME
     Dosage: UNK
     Route: 065
  2. ELESTAT [Concomitant]
     Active Substance: EPINASTINE HYDROCHLORIDE
     Indication: PRODUCT USED FOR UNKNOWN INDICATION
     Dosage: UNK
     Route: 065
     Dates: start: 20160901, end: 20161201
  3. ZADITOR [Suspect]
     Active Substance: KETOTIFEN FUMARATE
     Indication: SJOGREN^S SYNDROME
     Dosage: UNK
     Route: 065
  4. BEPREVE [Concomitant]
     Active Substance: BEPOTASTINE BESILATE
     Indication: PRODUCT USED FOR UNKNOWN INDICATION
     Dosage: UNK
     Route: 065
     Dates: start: 20160630, end: 20160830
  5. ACULAR [Concomitant]
     Active Substance: KETOROLAC TROMETHAMINE
     Indication: PRODUCT USED FOR UNKNOWN INDICATION
     Dosage: UNK
     Route: 065
     Dates: start: 20160101, end: 20160630

REACTIONS (1)
  - Treatment failure [Unknown]
